FAERS Safety Report 8808534 (Version 1)
Quarter: 2012Q4

REPORT INFORMATION
  Report Type: Spontaneous
  Country: US (occurrence: None)
  Receive Date: 20120920
  Receipt Date: 20120920
  Transmission Date: 20130627
  Serious: Yes (Other)
  Sender: FDA-Public Use
  Company Number: None

PATIENT
  Sex: Female
  Weight: 62 kg

DRUGS (2)
  1. ALTEPLASE [Suspect]
     Indication: STROKE
     Dates: start: 20120914, end: 20120914
  2. ALTEPLASE [Suspect]
     Indication: STROKE
     Route: 042
     Dates: start: 20120914, end: 20120914

REACTIONS (3)
  - Anaphylactic reaction [None]
  - Swollen tongue [None]
  - Dysphagia [None]
